FAERS Safety Report 15487140 (Version 6)
Quarter: 2020Q1

REPORT INFORMATION
  Report Type: Report from Study
  Country: CA (occurrence: CA)
  Receive Date: 20181011
  Receipt Date: 20200108
  Transmission Date: 20200409
  Serious: Yes (Other)
  Sender: FDA-Public Use
  Company Number: CA-AUROBINDO-AUR-APL-2018-049504

PATIENT
  Age: 84 Year
  Sex: Male

DRUGS (2)
  1. QUETIAPINE FILM-COATED TABLET [Suspect]
     Active Substance: QUETIAPINE
     Indication: PRODUCT USED FOR UNKNOWN INDICATION
     Dosage: 200 MILLIGRAM
     Route: 065
  2. DONEPEZIL TABLETS [Suspect]
     Active Substance: DONEPEZIL
     Indication: GOUT
     Dosage: UNK
     Route: 065

REACTIONS (6)
  - Muscle rigidity [Unknown]
  - Somnolence [Unknown]
  - Fall [Unknown]
  - Off label use [Unknown]
  - Unresponsive to stimuli [Unknown]
  - Sedation complication [Unknown]
